FAERS Safety Report 16719439 (Version 11)
Quarter: 2023Q1

REPORT INFORMATION
  Report Type: Spontaneous
  Country: US (occurrence: US)
  Receive Date: 20190820
  Receipt Date: 20230331
  Transmission Date: 20230418
  Serious: Yes (Other)
  Sender: FDA-Public Use
  Company Number: US-ASTELLAS-2019US006813

PATIENT
  Sex: Female

DRUGS (33)
  1. NOXAFIL [Suspect]
     Active Substance: POSACONAZOLE
     Indication: Antifungal treatment
     Dosage: 5 ML/200 MG, EVERY 8 HOURS; STRENGTH: 40 MG/ML
     Route: 048
     Dates: start: 20181125, end: 20181211
  2. NOXAFIL [Suspect]
     Active Substance: POSACONAZOLE
     Dosage: AT THE TIME OF THIS REPORT, IT WAS STOPPED FOR 3 DAYS DUE TO UNKNOWN REASON AND RESTARTED. UNK, UNKN
     Route: 048
  3. CRESEMBA [Interacting]
     Active Substance: ISAVUCONAZONIUM SULFATE
     Indication: Lung transplant
     Dosage: 372 MG, EVERY 8 HOURS, FOR 6 DOSES
     Route: 048
  4. CRESEMBA [Interacting]
     Active Substance: ISAVUCONAZONIUM SULFATE
     Indication: Aspergillus infection
     Dosage: 372 MG, EVERY 8 HOURS, FOR 6 DOSES
     Route: 048
     Dates: start: 201812
  5. CRESEMBA [Interacting]
     Active Substance: ISAVUCONAZONIUM SULFATE
     Indication: Mucormycosis
     Dosage: UNK UNK, UNKNOWN
     Route: 048
     Dates: start: 20190107
  6. CRESEMBA [Interacting]
     Active Substance: ISAVUCONAZONIUM SULFATE
     Indication: Fungal infection
     Dosage: 2 DOSAGE FORM, ONCE DAILY (2 CAPSULES)
     Route: 048
     Dates: start: 20190219
  7. CRESEMBA [Interacting]
     Active Substance: ISAVUCONAZONIUM SULFATE
     Indication: Bronchopulmonary aspergillosis
     Dosage: UNK
  8. CRESEMBA [Interacting]
     Active Substance: ISAVUCONAZONIUM SULFATE
     Dosage: UNK
  9. CRESEMBA [Interacting]
     Active Substance: ISAVUCONAZONIUM SULFATE
     Dosage: UNK
  10. PROGRAF [Interacting]
     Active Substance: TACROLIMUS
     Indication: Immunosuppressant drug therapy
     Dosage: 0.5 MILLIGRAM MORNING AND 0.5 MILLIGRAM EVENING (TWICE DAILY)
     Route: 048
     Dates: start: 20181218
  11. PROGRAF [Interacting]
     Active Substance: TACROLIMUS
     Dosage: 0.25 MG, ONCE DAILY
     Route: 048
  12. COVID-19 VACCINE NOS [Suspect]
     Active Substance: COVID-19 VACCINE NOS
     Indication: COVID-19 immunisation
     Dosage: UNK UNK, UNKNOWN
     Route: 065
  13. TOPROL XL [Concomitant]
     Active Substance: METOPROLOL SUCCINATE
     Dosage: UNK
  14. AMLODIPINE BESYLATE [Concomitant]
     Active Substance: AMLODIPINE BESYLATE
     Dosage: UNK
     Dates: start: 20181204
  15. PRAVACHOL [Concomitant]
     Active Substance: PRAVASTATIN SODIUM
     Dosage: UNK
  16. PREDNISONE [Concomitant]
     Active Substance: PREDNISONE
     Dosage: UNK
     Dates: start: 20181213, end: 20181221
  17. PREDNISONE [Concomitant]
     Active Substance: PREDNISONE
     Dosage: UNK
     Dates: start: 2006
  18. IMURAN [Concomitant]
     Active Substance: AZATHIOPRINE
     Dosage: UNK
  19. VALTREX [Concomitant]
     Active Substance: VALACYCLOVIR HYDROCHLORIDE
     Dosage: 500 MILLIGRAM
  20. MYCOSTATIN [Concomitant]
     Active Substance: NYSTATIN
     Dosage: UNK
  21. BACTRIM [Concomitant]
     Active Substance: SULFAMETHOXAZOLE\TRIMETHOPRIM
     Dosage: UNK
  22. ASPIRIN [Concomitant]
     Active Substance: ASPIRIN
     Dosage: UNK
  23. CALCIUM CARBONATE\CHOLECALCIFEROL [Concomitant]
     Active Substance: CALCIUM CARBONATE\CHOLECALCIFEROL
     Dosage: UNK
  24. MAGNESIUM OXIDE [Concomitant]
     Active Substance: MAGNESIUM OXIDE
     Dosage: UNK
  25. PRILOSEC [Concomitant]
     Active Substance: OMEPRAZOLE MAGNESIUM
     Dosage: UNK
  26. DEFLAZACORT [Concomitant]
     Active Substance: DEFLAZACORT
     Dosage: UNK
     Dates: start: 201610, end: 201610
  27. DEFLAZACORT [Concomitant]
     Active Substance: DEFLAZACORT
     Dosage: 0.5 MG
  28. VITAMINS NOS [Concomitant]
     Active Substance: VITAMINS
  29. MINERALS NOS [Concomitant]
     Active Substance: MINERALS
     Dosage: UNK
  30. INSULIN NOS [Concomitant]
     Active Substance: INSULIN NOS
  31. DELTASONE [Concomitant]
     Active Substance: PREDNISONE
     Dosage: 5 MG
  32. VOLTAREN [Concomitant]
     Active Substance: DICLOFENAC SODIUM
  33. CELLCEPT [Concomitant]
     Active Substance: MYCOPHENOLATE MOFETIL

REACTIONS (24)
  - Cataract [Unknown]
  - Acquired corneal dystrophy [Unknown]
  - Sputum discoloured [Recovered/Resolved]
  - Peripheral swelling [Not Recovered/Not Resolved]
  - Productive cough [Recovered/Resolved]
  - Viral infection [Not Recovered/Not Resolved]
  - Rotator cuff syndrome [Recovered/Resolved with Sequelae]
  - Fall [Recovered/Resolved with Sequelae]
  - Balance disorder [Not Recovered/Not Resolved]
  - Insomnia [Recovering/Resolving]
  - Dyspnoea [Not Recovered/Not Resolved]
  - Blood pressure increased [Unknown]
  - Pain [Recovering/Resolving]
  - Constipation [Unknown]
  - Fatigue [Not Recovered/Not Resolved]
  - Headache [Unknown]
  - Vomiting [Unknown]
  - Back pain [Not Recovered/Not Resolved]
  - Headache [Not Recovered/Not Resolved]
  - Muscle atrophy [Unknown]
  - Arthritis [Unknown]
  - Asthenia [Unknown]
  - Gait disturbance [Unknown]
  - Illness [Unknown]

NARRATIVE: CASE EVENT DATE: 20180101
